FAERS Safety Report 19732305 (Version 3)
Quarter: 2021Q3

REPORT INFORMATION
  Report Type: Spontaneous
  Country: JP (occurrence: JP)
  Receive Date: 20210820
  Receipt Date: 20210901
  Transmission Date: 20211014
  Serious: Yes (Hospitalization)
  Sender: FDA-Public Use
  Company Number: JP-B.I. PHARMACEUTICALS,INC./RIDGEFIELD-2021-BI-122639

PATIENT
  Age: 71 Year
  Sex: Male
  Weight: 60.8 kg

DRUGS (16)
  1. FEBURIC [Suspect]
     Active Substance: FEBUXOSTAT
     Indication: HYPERURICAEMIA
     Route: 048
     Dates: start: 20171129, end: 20210112
  2. ROCALTROL [Concomitant]
     Active Substance: CALCITRIOL
     Indication: PRODUCT USED FOR UNKNOWN INDICATION
     Route: 065
  3. VOGLIBOSE [Concomitant]
     Active Substance: VOGLIBOSE
     Route: 065
  4. P?TOL [MANNITOL] [Concomitant]
     Active Substance: MANNITOL
     Indication: PRODUCT USED FOR UNKNOWN INDICATION
     Route: 065
  5. AMLODIPINE [Concomitant]
     Active Substance: AMLODIPINE BESYLATE
     Indication: PRODUCT USED FOR UNKNOWN INDICATION
     Route: 065
  6. AMLODIPINE [Concomitant]
     Active Substance: AMLODIPINE BESYLATE
     Route: 065
  7. ARTIST [Concomitant]
     Active Substance: CARVEDILOL
     Route: 065
  8. MICARDIS [Concomitant]
     Active Substance: TELMISARTAN
     Route: 065
  9. LIVALO [Concomitant]
     Active Substance: PITAVASTATIN CALCIUM
     Indication: PRODUCT USED FOR UNKNOWN INDICATION
     Route: 065
  10. VOGLIBOSE [Concomitant]
     Active Substance: VOGLIBOSE
     Indication: PRODUCT USED FOR UNKNOWN INDICATION
     Route: 065
  11. ARTIST [Concomitant]
     Active Substance: CARVEDILOL
     Indication: PRODUCT USED FOR UNKNOWN INDICATION
     Route: 065
  12. LIVALO [Concomitant]
     Active Substance: PITAVASTATIN CALCIUM
     Route: 065
  13. TRAZENTA [Suspect]
     Active Substance: LINAGLIPTIN
     Indication: DIABETES MELLITUS
     Route: 048
     Dates: start: 20170327, end: 20201020
  14. MICARDIS [Concomitant]
     Active Substance: TELMISARTAN
     Indication: PRODUCT USED FOR UNKNOWN INDICATION
     Route: 065
  15. ROCALTROL [Concomitant]
     Active Substance: CALCITRIOL
     Route: 065
  16. DIART [AZOSEMIDE] [Suspect]
     Active Substance: AZOSEMIDE
     Indication: HYPERTENSION
     Route: 048
     Dates: start: 20170712, end: 20201021

REACTIONS (3)
  - Pyrexia [Recovered/Resolved]
  - Pemphigoid [Recovering/Resolving]
  - Fall [Recovered/Resolved]

NARRATIVE: CASE EVENT DATE: 20201009
